FAERS Safety Report 7964504-7 (Version None)
Quarter: 2011Q4

REPORT INFORMATION
  Report Type: 
  Country: None (occurrence: None)
  Receive Date: 20111208
  Receipt Date: 20111206
  Transmission Date: 20120403
  Serious: Yes (Other)
  Sender: FDA-Public Use
  Company Number: US-PFIZER INC-2011127667

PATIENT
  Sex: Female

DRUGS (7)
  1. CELEBREX [Concomitant]
     Indication: ARTHRITIS
     Dosage: 200 MG, 1X/DAY
     Route: 048
  2. ALENDRONATE SODIUM [Concomitant]
     Indication: CALCIUM DEFICIENCY
     Dosage: 70 MG, UNK
  3. AMLODIPINE BESILATE [Concomitant]
     Dosage: 2.5 MG, 1X/DAY
     Route: 048
  4. XALATAN [Suspect]
     Indication: GLAUCOMA
     Dosage: 1 DROP IN EACH EYE, 1X/DAY
     Route: 047
  5. ATENOLOL [Concomitant]
     Dosage: 25 MG, DAILY
  6. LIPITOR [Suspect]
     Indication: BLOOD CHOLESTEROL INCREASED
     Dosage: 10 MG, DAILY
     Route: 048
  7. DETROL LA [Concomitant]
     Indication: BLADDER DISORDER
     Dosage: 4 MG, 1X/DAY
     Route: 048

REACTIONS (1)
  - MACULAR DEGENERATION [None]
